FAERS Safety Report 12697340 (Version 1)
Quarter: 2016Q3

REPORT INFORMATION
  Report Type: Spontaneous
  Country: US (occurrence: None)
  Receive Date: 20160829
  Receipt Date: 20160829
  Transmission Date: 20161109
  Serious: Yes (Other)
  Sender: FDA-Public Use
  Company Number: None

PATIENT
  Age: 44 Year
  Sex: Female
  Weight: 59.42 kg

DRUGS (4)
  1. COPAXONE [Concomitant]
     Active Substance: GLATIRAMER ACETATE
  2. IBUPROFEN MSM (METHYL-SULFONYL-METHANE) [Concomitant]
  3. VITAMIN D [Concomitant]
     Active Substance: CHOLECALCIFEROL
  4. SUN BUM SUNSCREEN LIP BALM BROAD SPECTRUM SPF 30 PINK GRAPEFRUIT [Suspect]
     Active Substance: AVOBENZONE\HOMOSALATE\OCTINOXATE\OCTISALATE
     Indication: LIP DRY
     Dosage: 4 TIMES APPLIED AT BEDTIME APPLIED TO A SURFACE, USUALLY THE SKIN
     Route: 061
     Dates: start: 20160821, end: 20160827

REACTIONS (1)
  - Lip swelling [None]

NARRATIVE: CASE EVENT DATE: 20160827
